FAERS Safety Report 16796480 (Version 1)
Quarter: 2019Q3

REPORT INFORMATION
  Report Type: Spontaneous
  Country: US (occurrence: US)
  Receive Date: 20190911
  Receipt Date: 20190911
  Transmission Date: 20191005
  Serious: No
  Sender: FDA-Public Use
  Company Number: US-SA-2019SA253485

PATIENT
  Sex: Female

DRUGS (1)
  1. DUPIXENT [Suspect]
     Active Substance: DUPILUMAB
     Dosage: 300 MG, QOW
     Route: 058
     Dates: start: 20190726

REACTIONS (5)
  - Abdominal discomfort [Recovering/Resolving]
  - Nausea [Recovering/Resolving]
  - Malaise [Recovering/Resolving]
  - Productive cough [Recovering/Resolving]
  - Pain in extremity [Recovering/Resolving]
